FAERS Safety Report 8797836 (Version 1)
Quarter: 2012Q4

REPORT INFORMATION
  Report Type: 
  Country: US (occurrence: US)
  Receive Date: 20120919
  Receipt Date: 20120919
  Transmission Date: 20130627
  Serious: No
  Sender: FDA-Public Use
  Company Number: US-ASTRAZENECA-2004UW17158

PATIENT
  Age: 88 Year
  Sex: Female
  Weight: 69.4 kg

DRUGS (12)
  1. LISINOPRIL [Suspect]
     Route: 048
  2. CRESTOR [Suspect]
     Indication: BLOOD CHOLESTEROL INCREASED
     Route: 048
  3. ZYRTEC [Concomitant]
  4. LORAZEPAM [Concomitant]
  5. DICYCOLMINE [Concomitant]
  6. CELEBREX [Concomitant]
  7. VENAZETRIL [Concomitant]
  8. PREVACID [Concomitant]
  9. METOPROLOL [Concomitant]
  10. VITAMINS [Concomitant]
  11. PROPOXY [Concomitant]
  12. KLOR CON [Concomitant]

REACTIONS (3)
  - Mouth ulceration [Unknown]
  - Dementia [Unknown]
  - Urate nephropathy [Unknown]
